FAERS Safety Report 11830818 (Version 1)
Quarter: 2015Q4

REPORT INFORMATION
  Report Type: Spontaneous
  Country: CN (occurrence: CN)
  Receive Date: 20151214
  Receipt Date: 20151214
  Transmission Date: 20160305
  Serious: Yes (Other)
  Sender: FDA-Public Use
  Company Number: CN-ALEMBIC PHARMACUETICALS LIMITED-2015SCAL000861

PATIENT

DRUGS (4)
  1. LAMOTRIGINE. [Suspect]
     Active Substance: LAMOTRIGINE
     Dosage: MEAN DOSE, 114 MG/D
  2. LAMOTRIGINE. [Suspect]
     Active Substance: LAMOTRIGINE
     Indication: PARTIAL SEIZURES
     Dosage: INITIAL DOSE, 12.5 MG/D
  3. LAMOTRIGINE. [Suspect]
     Active Substance: LAMOTRIGINE
     Dosage: INCREMENT OF DOSE, 12.5 MG/W
  4. LAMOTRIGINE. [Suspect]
     Active Substance: LAMOTRIGINE
     Dosage: TARGET DOSE, 100-200 MG/D

REACTIONS (18)
  - Irritability [Unknown]
  - White blood cell count decreased [Unknown]
  - Pigmentation disorder [Unknown]
  - Treatment failure [Unknown]
  - Rash [Unknown]
  - Disturbance in attention [Unknown]
  - Nervousness [Unknown]
  - Erythema [Unknown]
  - Somnolence [Unknown]
  - Tremor [Unknown]
  - Confusional state [Unknown]
  - Menstrual disorder [Unknown]
  - Memory impairment [Unknown]
  - Anxiety [Unknown]
  - Dizziness [Unknown]
  - Mental impairment [Unknown]
  - Pruritus [Unknown]
  - Weight increased [Unknown]
